FAERS Safety Report 7069708-6 (Version None)
Quarter: 2010Q4

REPORT INFORMATION
  Report Type: 
  Country: None (occurrence: None)
  Receive Date: 20101028
  Receipt Date: 20100519
  Transmission Date: 20110411
  Serious: No
  Sender: FDA-Public Use
  Company Number: US-WYE-H15323510

PATIENT
  Sex: Male

DRUGS (3)
  1. ADVIL [Suspect]
     Indication: PAIN
     Dosage: 10-12 TABLET DAILY
     Route: 048
     Dates: start: 20100301, end: 20100101
  2. ADVIL [Suspect]
     Dosage: 6-8 TABLETS DAILY
     Route: 048
     Dates: start: 20100101, end: 20100101
  3. ADVIL [Suspect]
     Dosage: 3-4 TABLETS DAILY
     Route: 048
     Dates: start: 20100101

REACTIONS (1)
  - CHROMATURIA [None]
